FAERS Safety Report 23565466 (Version 1)
Quarter: 2024Q1

REPORT INFORMATION
  Report Type: Spontaneous
  Country: HR (occurrence: None)
  Receive Date: 20240224
  Receipt Date: 20240224
  Transmission Date: 20240410
  Serious: Yes (Other)
  Sender: FDA-Public Use
  Company Number: None

PATIENT
  Age: 33 Year
  Sex: Female
  Weight: 47 kg

DRUGS (1)
  1. REMICADE [Suspect]
     Active Substance: INFLIXIMAB
     Route: 058

REACTIONS (5)
  - Hidradenitis [None]
  - Abscess [None]
  - Psoriasis [None]
  - Escherichia urinary tract infection [None]
  - Vulvovaginal mycotic infection [None]

NARRATIVE: CASE EVENT DATE: 20231015
